FAERS Safety Report 9785327 (Version 1)
Quarter: 2013Q4

REPORT INFORMATION
  Report Type: Spontaneous
  Country: US (occurrence: US)
  Receive Date: 20131227
  Receipt Date: 20131227
  Transmission Date: 20140711
  Serious: No
  Sender: FDA-Public Use
  Company Number: US-MYLANLABS-2013S1013981

PATIENT
  Age: 67 Year
  Sex: Female
  Weight: 72.58 kg

DRUGS (1)
  1. CITALOPRAM TABLETS [Suspect]
     Indication: DEPRESSION
     Route: 048
     Dates: start: 20130622

REACTIONS (1)
  - Pruritus [Not Recovered/Not Resolved]
